FAERS Safety Report 21305990 (Version 1)
Quarter: 2022Q3

REPORT INFORMATION
  Report Type: Report from Study
  Country: US (occurrence: US)
  Receive Date: 20220908
  Receipt Date: 20220908
  Transmission Date: 20221027
  Serious: No
  Sender: FDA-Public Use
  Company Number: US-NOVARTISTESTPH-NVSC2022US202097

PATIENT
  Sex: Female

DRUGS (1)
  1. ARZERRA [Suspect]
     Active Substance: OFATUMUMAB
     Indication: Juvenile idiopathic arthritis
     Dosage: 700 MG, Q2W
     Route: 042
     Dates: start: 20220825, end: 20220825

REACTIONS (2)
  - Chest discomfort [Unknown]
  - Dyspnoea [Unknown]
